FAERS Safety Report 20466766 (Version 1)
Quarter: 2022Q1

REPORT INFORMATION
  Report Type: Report from Study
  Country: RO (occurrence: RO)
  Receive Date: 20220214
  Receipt Date: 20220214
  Transmission Date: 20220424
  Serious: Yes (Other)
  Sender: FDA-Public Use
  Company Number: RO-SUN PHARMACEUTICAL INDUSTRIES LTD-2022R1-326151

PATIENT
  Age: 67 Year
  Sex: Female

DRUGS (3)
  1. BUDESONIDE\FORMOTEROL [Suspect]
     Active Substance: BUDESONIDE\FORMOTEROL
     Indication: Product used for unknown indication
     Dosage: 320/9 MICROGRAM
     Route: 065
  2. MOMETASONE [Suspect]
     Active Substance: MOMETASONE
     Indication: Rhinitis allergic
     Dosage: 2X2 NASAL INHALATIONS/DAY
     Route: 065
  3. ALBUTEROL [Suspect]
     Active Substance: ALBUTEROL
     Indication: Product used for unknown indication
     Dosage: 100 MICROGRAM
     Route: 065

REACTIONS (2)
  - Asthma [Unknown]
  - Obstructive airways disorder [Unknown]
